FAERS Safety Report 15907057 (Version 2)
Quarter: 2019Q2

REPORT INFORMATION
  Report Type: Spontaneous
  Country: US (occurrence: US)
  Receive Date: 20190204
  Receipt Date: 20190401
  Transmission Date: 20190711
  Serious: No
  Sender: FDA-Public Use
  Company Number: US-PFIZER INC-2018084825

PATIENT
  Age: 9 Year
  Sex: Female
  Weight: 23.59 kg

DRUGS (4)
  1. GENOTROPIN [Suspect]
     Active Substance: SOMATROPIN
     Indication: GROWTH HORMONE DEFICIENCY
     Dosage: 0.7 MG, 1X/DAY (7 NIGHTS A WEEK)
     Route: 058
     Dates: start: 201403
  2. GENOTROPIN [Suspect]
     Active Substance: SOMATROPIN
     Indication: COSTELLO SYNDROME
     Dosage: 0.7 MG, DAILY
     Dates: start: 20170330
  3. GENOTROPIN [Suspect]
     Active Substance: SOMATROPIN
     Dosage: 0.7 MG, 1X/DAY (NIGHT)
     Dates: start: 201704
  4. GENOTROPIN [Suspect]
     Active Substance: SOMATROPIN
     Dosage: 0.8 MG, 1X/DAY (NIGHTLY)
     Dates: start: 201704

REACTIONS (1)
  - Blood iron increased [Unknown]

NARRATIVE: CASE EVENT DATE: 20190114
